FAERS Safety Report 24318161 (Version 1)
Quarter: 2024Q3

REPORT INFORMATION
  Report Type: Spontaneous
  Country: US (occurrence: None)
  Receive Date: 20240913
  Receipt Date: 20240913
  Transmission Date: 20241016
  Serious: Yes (Death)
  Sender: Public
  Company Number: None

PATIENT
  Age: 81 Year
  Sex: Male

DRUGS (15)
  1. ABIRATERONE [Suspect]
     Active Substance: ABIRATERONE
     Indication: Prostate cancer
     Dosage: 1000 MG DAILY ORAL
     Route: 048
     Dates: start: 202407, end: 202409
  2. ALPRAZOLAM 0.25MG [Concomitant]
  3. ATORVASTATIN 80MG [Concomitant]
  4. BICALUTAMIDE 50MG [Concomitant]
  5. CYANOCOBALAMIN 1000MCG/ML [Concomitant]
  6. DRAMAMINE 50MG [Concomitant]
  7. ELIQUIS 5MG [Concomitant]
  8. FLUTICASONE 50MCG NASAL SP [Concomitant]
  9. JANUVIA 100MG [Concomitant]
  10. METFORMIN 500MG [Concomitant]
  11. MIRTAZAPINE 7.5MG [Concomitant]
  12. OLANZAPINE 2.5MG [Concomitant]
  13. OMEPRAZOLE 20MG [Concomitant]
  14. METOPROLOL [Concomitant]
     Active Substance: METOPROLOL
  15. ONDANSETRON [Concomitant]
     Active Substance: ONDANSETRON

REACTIONS (1)
  - Neoplasm malignant [None]

NARRATIVE: CASE EVENT DATE: 20240901
